FAERS Safety Report 7412581-4 (Version None)
Quarter: 2011Q2

REPORT INFORMATION
  Report Type: 
  Country: None (occurrence: None)
  Receive Date: 20110408
  Receipt Date: 20110408
  Transmission Date: 20111010
  Serious: Yes (Life-Threatening, Disabling)
  Sender: FDA-Public Use
  Company Number: None

PATIENT
  Age: 8 Year
  Sex: Male
  Weight: 27.2158 kg

DRUGS (1)
  1. GEODON [Suspect]
     Indication: ABNORMAL BEHAVIOUR
     Dosage: 40MG AT BEDTIME PO
     Route: 048
     Dates: start: 20110311, end: 20110411

REACTIONS (8)
  - ARTHRALGIA [None]
  - PYREXIA [None]
  - DYSURIA [None]
  - HEART RATE INCREASED [None]
  - TARDIVE DYSKINESIA [None]
  - TREMOR [None]
  - PROTRUSION TONGUE [None]
  - MYALGIA [None]
